FAERS Safety Report 8114453-9 (Version None)
Quarter: 2012Q1

REPORT INFORMATION
  Report Type: 
  Country: None (occurrence: None)
  Receive Date: 20120206
  Receipt Date: 20120125
  Transmission Date: 20120608
  Serious: No
  Sender: FDA-Public Use
  Company Number: US-BIOGENIDEC-2011BI009328

PATIENT
  Sex: Female

DRUGS (1)
  1. AVONEX [Suspect]
     Indication: MULTIPLE SCLEROSIS
     Route: 030
     Dates: start: 20030206

REACTIONS (10)
  - FALL [None]
  - INTERVERTEBRAL DISC DEGENERATION [None]
  - NERVE INJURY [None]
  - GAIT DISTURBANCE [None]
  - DIABETES MELLITUS [None]
  - OSTEOARTHRITIS [None]
  - MUSCULAR WEAKNESS [None]
  - OPTIC NEURITIS [None]
  - ABASIA [None]
  - TREMOR [None]
